FAERS Safety Report 6020328-1 (Version None)
Quarter: 2008Q4

REPORT INFORMATION
  Report Type: 
  Country: None (occurrence: None)
  Receive Date: 20081226
  Receipt Date: 20081219
  Transmission Date: 20090506
  Serious: Yes (Other)
  Sender: FDA-Public Use
  Company Number: PHHY2008JP22560

PATIENT
  Age: 36 Year
  Sex: Female

DRUGS (4)
  1. NEORAL [Suspect]
     Indication: RENAL TRANSPLANT
     Dosage: 150 MG/D
     Dates: start: 19960626
  2. METHYLPREDNISOLONE 16MG TAB [Concomitant]
     Indication: RENAL TRANSPLANT
     Dosage: UNK
     Route: 048
     Dates: start: 19960626
  3. MIZORIBINE [Concomitant]
     Indication: RENAL TRANSPLANT
     Dosage: UNK
     Dates: start: 19950626, end: 20030101
  4. AZATHIOPRINE [Concomitant]
     Indication: RENAL TRANSPLANT
     Dosage: UNK
     Dates: start: 20030101

REACTIONS (12)
  - AMNIOTIC FLUID VOLUME DECREASED [None]
  - ANAEMIA [None]
  - BLOOD CREATININE INCREASED [None]
  - DIABETES MELLITUS [None]
  - DRUG EXPOSURE DURING PREGNANCY [None]
  - HYPERLIPIDAEMIA [None]
  - HYPERTENSION [None]
  - HYPERURICAEMIA [None]
  - PROTEINURIA [None]
  - THYROID FUNCTION TEST ABNORMAL [None]
  - UTERINE ATONY [None]
  - WEIGHT INCREASED [None]
